FAERS Safety Report 5720707-3 (Version None)
Quarter: 2008Q2

REPORT INFORMATION
  Report Type: 
  Country: None (occurrence: None)
  Receive Date: 20080429
  Receipt Date: 20080422
  Transmission Date: 20081010
  Serious: Yes (Life-Threatening, Hospitalization, Disabling, Other)
  Sender: FDA-Public Use
  Company Number: GB-JNJFOC-20080405632

PATIENT
  Age: 61 Year
  Sex: Male
  Weight: 74.5 kg

DRUGS (6)
  1. TOPIRAMATE [Suspect]
     Indication: CONVULSION
     Route: 048
  2. TEMOZOLOMIDE [Suspect]
     Indication: GLIOBLASTOMA MULTIFORME
     Route: 048
  3. ALLOPURINOL [Suspect]
     Indication: GOUT
     Route: 048
  4. DEXAMETHASONE [Concomitant]
     Indication: GLIOBLASTOMA
     Route: 048
  5. FILGRASTIM [Concomitant]
     Indication: NEUTROPENIA
     Route: 058
  6. NEORECORMON [Concomitant]
     Indication: ANAEMIA
     Route: 058

REACTIONS (2)
  - HAEMORRHAGE [None]
  - PANCYTOPENIA [None]
